FAERS Safety Report 6763340-7 (Version None)
Quarter: 2010Q2

REPORT INFORMATION
  Report Type: 
  Country: None (occurrence: None)
  Receive Date: 20100610
  Receipt Date: 20100420
  Transmission Date: 20101027
  Serious: Yes (Hospitalization, Other)
  Sender: FDA-Public Use
  Company Number: US-BAYER-201017000NA

PATIENT
  Age: 40 Year
  Sex: Female
  Weight: 66 kg

DRUGS (6)
  1. YAZ [Suspect]
     Indication: ORAL CONTRACEPTION
     Route: 048
     Dates: start: 20060601, end: 20060901
  2. YASMIN [Suspect]
     Indication: DRUG USE FOR UNKNOWN INDICATION
     Route: 048
     Dates: start: 20060501, end: 20060901
  3. HEART MEDS [Concomitant]
  4. ANTICOAGULANTS [Concomitant]
  5. ANTIBIOTICS [Concomitant]
  6. MINOCYCLINE HCL [Concomitant]

REACTIONS (1)
  - DEEP VEIN THROMBOSIS [None]
